FAERS Safety Report 16659939 (Version 3)
Quarter: 2019Q3

REPORT INFORMATION
  Report Type: Spontaneous
  Country: US (occurrence: US)
  Receive Date: 20190802
  Receipt Date: 20190901
  Transmission Date: 20191004
  Serious: Yes (Hospitalization)
  Sender: FDA-Public Use
  Company Number: US-BIOGEN-2019BI00768044

PATIENT
  Sex: Female

DRUGS (1)
  1. AVONEX [Suspect]
     Active Substance: INTERFERON BETA-1A
     Indication: MULTIPLE SCLEROSIS
     Route: 065
     Dates: start: 19991201

REACTIONS (6)
  - Metabolic encephalopathy [Unknown]
  - Gait inability [Unknown]
  - Sepsis [Unknown]
  - Tremor [Unknown]
  - Urinary tract infection [Unknown]
  - Mental impairment [Unknown]
